FAERS Safety Report 7879931-6 (Version None)
Quarter: 2011Q4

REPORT INFORMATION
  Report Type: 
  Country: None (occurrence: None)
  Receive Date: 20111101
  Receipt Date: 20111025
  Transmission Date: 20120403
  Serious: Yes (Other)
  Sender: FDA-Public Use
  Company Number: CA-MERCK-1110USA03894

PATIENT
  Age: 57 Year
  Sex: Female
  Weight: 91 kg

DRUGS (4)
  1. SYNTHROID [Concomitant]
     Route: 048
  2. PANTOPRAZOLE [Concomitant]
     Route: 048
  3. JANUVIA [Suspect]
     Route: 048
  4. METFORMIN [Concomitant]
     Route: 048

REACTIONS (4)
  - HEADACHE [None]
  - DEPRESSION [None]
  - PAIN [None]
  - HYPERSOMNIA [None]
